FAERS Safety Report 6393787 (Version 6)
Quarter: 2020Q3

REPORT INFORMATION
  Report Type: Spontaneous
  Country: DE (occurrence: DE)
  Receive Date: 20070829
  Receipt Date: 20080307
  Transmission Date: 20201105
  Serious: Yes (Death, Hospitalization)
  Sender: FDA-Public Use
  Company Number: DE-ROCHE-512794

PATIENT
  Age: 57 Year
  Sex: Female

DRUGS (3)
  1. IBANDRONIC ACID. [Suspect]
     Active Substance: IBANDRONIC ACID
     Route: 065
     Dates: start: 200507, end: 200707
  2. UNSPECIFIED INGREDIENT [Concomitant]
     Active Substance: UNSPECIFIED INGREDIENT
     Dates: start: 20070524, end: 200708
  3. ZOMETA [Concomitant]
     Active Substance: ZOLEDRONIC ACID
     Dosage: FORM: INFUSION
     Route: 050
     Dates: start: 200506

REACTIONS (3)
  - Disease progression [Fatal]
  - Metastases to bone [Not Recovered/Not Resolved]
  - Ill-defined disorder [Unknown]
